FAERS Safety Report 11247040 (Version 2)
Quarter: 2015Q3

REPORT INFORMATION
  Report Type: Spontaneous
  Country: RU (occurrence: RU)
  Receive Date: 20150708
  Receipt Date: 20150821
  Transmission Date: 20151125
  Serious: Yes (Death, Hospitalization, Other)
  Sender: FDA-Public Use
  Company Number: RU-JNJFOC-20150703497

PATIENT
  Age: 11 Year
  Sex: Female

DRUGS (9)
  1. SIMPONI [Suspect]
     Active Substance: GOLIMUMAB
     Indication: JUVENILE IDIOPATHIC ARTHRITIS
     Route: 058
     Dates: start: 201307
  2. METHOTREXATE [Concomitant]
     Active Substance: METHOTREXATE
     Indication: JUVENILE IDIOPATHIC ARTHRITIS
     Route: 065
     Dates: start: 2004, end: 2015
  3. FOLIC ACID. [Concomitant]
     Active Substance: FOLIC ACID
     Indication: UVEITIS
     Dosage: 1 TABLET A DAY.
     Route: 065
     Dates: start: 2004, end: 2015
  4. PANANGIN [Concomitant]
     Active Substance: MAGNESIUM ASPARTATE\POTASSIUM ASPARTATE
     Indication: HEART DISEASE CONGENITAL
     Dosage: 1 TABLET TWICE A DAY.
     Route: 065
  5. SIMPONI [Suspect]
     Active Substance: GOLIMUMAB
     Indication: JUVENILE IDIOPATHIC ARTHRITIS
     Route: 058
     Dates: start: 201411
  6. METHOTREXATE [Concomitant]
     Active Substance: METHOTREXATE
     Indication: UVEITIS
     Route: 065
     Dates: start: 2004, end: 2015
  7. PANANGIN [Concomitant]
     Active Substance: MAGNESIUM ASPARTATE\POTASSIUM ASPARTATE
     Indication: AUTONOMIC NERVOUS SYSTEM IMBALANCE
     Dosage: 1 TABLET TWICE A DAY.
     Route: 065
  8. SIMPONI [Suspect]
     Active Substance: GOLIMUMAB
     Indication: JUVENILE IDIOPATHIC ARTHRITIS
     Route: 058
     Dates: end: 201506
  9. FOLIC ACID. [Concomitant]
     Active Substance: FOLIC ACID
     Indication: JUVENILE IDIOPATHIC ARTHRITIS
     Dosage: 1 TABLET A DAY.
     Route: 065
     Dates: start: 2004, end: 2015

REACTIONS (8)
  - Vomiting [Fatal]
  - Autonomic nervous system imbalance [Fatal]
  - Cardiac valve disease [Unknown]
  - Cyanosis [Fatal]
  - Arthritis [Recovered/Resolved]
  - Product use issue [Unknown]
  - Loss of consciousness [Fatal]
  - Uveitis [Recovered/Resolved]

NARRATIVE: CASE EVENT DATE: 201307
